FAERS Safety Report 15907882 (Version 1)
Quarter: 2019Q1

REPORT INFORMATION
  Report Type: Spontaneous
  Country: US (occurrence: US)
  Receive Date: 20190204
  Receipt Date: 20190204
  Transmission Date: 20190417
  Serious: No
  Sender: FDA-Public Use
  Company Number: US-BAUSCH-BL-2019-002570

PATIENT
  Age: 21 Year
  Sex: Female

DRUGS (1)
  1. SILIQ [Suspect]
     Active Substance: BRODALUMAB
     Indication: PRODUCT USED FOR UNKNOWN INDICATION
     Dosage: FIRST INJECTION OF LOADING DOSE, ON WEEK 1
     Route: 065

REACTIONS (4)
  - Contusion [Unknown]
  - Joint swelling [Unknown]
  - Chest pain [Unknown]
  - Arthralgia [Unknown]
